FAERS Safety Report 16636206 (Version 2)
Quarter: 2019Q4

REPORT INFORMATION
  Report Type: Spontaneous
  Country: US (occurrence: US)
  Receive Date: 20190726
  Receipt Date: 20191118
  Transmission Date: 20200122
  Serious: Yes (Hospitalization)
  Sender: FDA-Public Use
  Company Number: US-PFIZER INC-2019315818

PATIENT
  Age: 77 Year
  Sex: Female
  Weight: 58.97 kg

DRUGS (2)
  1. EXEMESTANE. [Concomitant]
     Active Substance: EXEMESTANE
     Indication: BREAST CANCER METASTATIC
     Dosage: 25 MG, 1X/DAY
  2. IBRANCE [Suspect]
     Active Substance: PALBOCICLIB
     Indication: BREAST CANCER METASTATIC
     Dosage: 125 MG, CYCLIC, [1 CAPSULE EVERY DAY FOR 3 WEEKS THEN OFF FOR 1 WEEK.]
     Dates: start: 20190129, end: 20190704

REACTIONS (5)
  - Urinary tract infection [Recovered/Resolved]
  - Fatigue [Unknown]
  - Neoplasm progression [Unknown]
  - Body height decreased [Unknown]
  - Malaise [Unknown]
